FAERS Safety Report 20411074 (Version 1)
Quarter: 2022Q1

REPORT INFORMATION
  Report Type: Spontaneous
  Country: US (occurrence: None)
  Receive Date: 20220131
  Receipt Date: 20220131
  Transmission Date: 20220424
  Serious: No
  Sender: FDA-Public Use
  Company Number: None

PATIENT
  Age: 72 Year
  Sex: Male

DRUGS (1)
  1. PREGABALIN [Suspect]
     Active Substance: PREGABALIN
     Dosage: FREQUENCY : TWICE A DAY;?
     Route: 048
     Dates: start: 20210804, end: 20211015

REACTIONS (1)
  - Nightmare [None]

NARRATIVE: CASE EVENT DATE: 20211015
